FAERS Safety Report 11588665 (Version 1)
Quarter: 2015Q4

REPORT INFORMATION
  Report Type: Spontaneous
  Country: CA (occurrence: CA)
  Receive Date: 20151002
  Receipt Date: 20151002
  Transmission Date: 20160304
  Serious: Yes (Other)
  Sender: FDA-Public Use
  Company Number: CA-ABBVIE-15P-028-1471737-00

PATIENT
  Age: 54 Year
  Sex: Male

DRUGS (15)
  1. DDI [Suspect]
     Active Substance: DIDANOSINE
     Dosage: PAST HIV MEDICATION
     Route: 048
  2. ATAZANAVIR [Suspect]
     Active Substance: ATAZANAVIR
     Indication: ANTIRETROVIRAL THERAPY
     Route: 048
  3. D4T [Suspect]
     Active Substance: STAVUDINE
     Indication: HIV INFECTION
     Route: 048
  4. 3TC [Suspect]
     Active Substance: LAMIVUDINE
     Dosage: PAST HIV MEDICATION
     Route: 048
  5. SAQUINAVIR [Suspect]
     Active Substance: SAQUINAVIR
     Indication: HIV INFECTION
     Route: 048
  6. NEVIRAPINE. [Suspect]
     Active Substance: NEVIRAPINE
     Indication: ANTIRETROVIRAL THERAPY
     Dosage: CURRENT HAART
     Route: 048
  7. AZT [Suspect]
     Active Substance: ZIDOVUDINE
     Indication: HIV INFECTION
     Route: 048
  8. INDINAVIR [Suspect]
     Active Substance: INDINAVIR
     Indication: HIV INFECTION
     Route: 048
  9. ENFUVIRTIDE [Suspect]
     Active Substance: ENFUVIRTIDE
     Indication: HIV INFECTION
     Route: 048
  10. KALETRA [Suspect]
     Active Substance: LOPINAVIR\RITONAVIR
     Indication: ANTIRETROVIRAL THERAPY
     Route: 048
  11. 3TC [Suspect]
     Active Substance: LAMIVUDINE
     Indication: ANTIRETROVIRAL THERAPY
     Dosage: PAST HIV MEDICATION
     Route: 048
  12. ABACAVIR. [Suspect]
     Active Substance: ABACAVIR
     Indication: HIV INFECTION
     Route: 048
  13. TENOFOVIR [Suspect]
     Active Substance: TENOFOVIR
     Indication: HIV INFECTION
     Route: 048
  14. NEVIRAPINE. [Suspect]
     Active Substance: NEVIRAPINE
     Dosage: PAST HIV MEDICATION
     Route: 048
  15. DDI [Suspect]
     Active Substance: DIDANOSINE
     Indication: ANTIRETROVIRAL THERAPY
     Dosage: CURRENT HAART
     Route: 048

REACTIONS (5)
  - Diplopia [Unknown]
  - Mitochondrial toxicity [Unknown]
  - Dysphagia [Unknown]
  - Lipodystrophy acquired [Unknown]
  - Eyelid ptosis [Unknown]
